FAERS Safety Report 23383528 (Version 1)
Quarter: 2024Q1

REPORT INFORMATION
  Report Type: Spontaneous
  Country: US (occurrence: US)
  Receive Date: 20240109
  Receipt Date: 20240109
  Transmission Date: 20240410
  Serious: No
  Sender: FDA-Public Use
  Company Number: US-SA-SAC20240104000888

PATIENT
  Sex: Female

DRUGS (4)
  1. DUPIXENT [Suspect]
     Active Substance: DUPILUMAB
     Indication: Asthma
     Dosage: 300 MG, QOW
     Route: 058
     Dates: start: 20191231
  2. GAMMAPLEX [Concomitant]
     Active Substance: HUMAN IMMUNOGLOBULIN G
  3. NOVOLOG [Concomitant]
     Active Substance: INSULIN ASPART
  4. XANAX [Concomitant]
     Active Substance: ALPRAZOLAM

REACTIONS (4)
  - COVID-19 [Unknown]
  - Impaired quality of life [Unknown]
  - Drug ineffective [Unknown]
  - Product dose omission in error [Unknown]
